FAERS Safety Report 8427502-5 (Version None)
Quarter: 2012Q2

REPORT INFORMATION
  Report Type: 
  Country: None (occurrence: None)
  Receive Date: 20120611
  Receipt Date: 20120529
  Transmission Date: 20120825
  Serious: Yes (Other)
  Sender: FDA-Public Use
  Company Number: FI-INCYTE CORPORATION-2012IN000977

PATIENT
  Sex: Female

DRUGS (1)
  1. INC424 [Suspect]

REACTIONS (1)
  - VISUAL IMPAIRMENT [None]
